FAERS Safety Report 6683295-3 (Version None)
Quarter: 2010Q2

REPORT INFORMATION
  Report Type: 
  Country: None (occurrence: None)
  Receive Date: 20100415
  Receipt Date: 20100409
  Transmission Date: 20101027
  Serious: Yes (Hospitalization)
  Sender: FDA-Public Use
  Company Number: US-GILEAD-2010-0028057

PATIENT
  Sex: Female
  Weight: 48.6 kg

DRUGS (12)
  1. LETAIRIS [Suspect]
     Indication: PULMONARY ARTERIAL HYPERTENSION
     Route: 048
     Dates: start: 20090924
  2. ASPIRIN [Concomitant]
  3. EXFORGE [Concomitant]
  4. NIFEDIPINE [Concomitant]
  5. PLAQUENIL [Concomitant]
  6. LIPITOR [Concomitant]
  7. PROTONIX [Concomitant]
  8. LEXAPRO [Concomitant]
  9. TEMAZEPAM [Concomitant]
  10. TYLENOL-500 [Concomitant]
  11. FISH OIL [Concomitant]
  12. VITAMIN D [Concomitant]

REACTIONS (1)
  - PNEUMONIA [None]
